FAERS Safety Report 18399456 (Version 13)
Quarter: 2023Q4

REPORT INFORMATION
  Report Type: Spontaneous
  Country: US (occurrence: US)
  Receive Date: 20201019
  Receipt Date: 20231215
  Transmission Date: 20240110
  Serious: Yes (Hospitalization, Other)
  Sender: FDA-Public Use
  Company Number: US-PFIZER INC-2020139424

PATIENT
  Age: 69 Year
  Sex: Female
  Weight: 90.72 kg

DRUGS (3)
  1. PREMARIN [Suspect]
     Active Substance: ESTROGENS, CONJUGATED
     Indication: Hormone replacement therapy
     Dosage: 0.625 MG, 1X/DAY
     Route: 048
     Dates: start: 202003
  2. PREMARIN [Suspect]
     Active Substance: ESTROGENS, CONJUGATED
     Dosage: UNK, WEEKLY (ONCE A WEEK)
  3. PREMARIN [Suspect]
     Active Substance: ESTROGENS, CONJUGATED
     Dosage: UNK, 2X/WEEK

REACTIONS (8)
  - Near death experience [Unknown]
  - Nephrolithiasis [Unknown]
  - Colon cancer [Recovering/Resolving]
  - Intentional product misuse [Unknown]
  - Memory impairment [Unknown]
  - Asthma [Unknown]
  - Illness [Unknown]
  - Alopecia [Unknown]

NARRATIVE: CASE EVENT DATE: 20230101
